FAERS Safety Report 5028839-2 (Version None)
Quarter: 2006Q2

REPORT INFORMATION
  Report Type: 
  Country: None (occurrence: None)
  Receive Date: 20060501
  Receipt Date: 20060224
  Transmission Date: 20061013
  Serious: No
  Sender: FDA-Public Use
  Company Number: 200612099US

PATIENT
  Sex: 0

DRUGS (1)
  1. KETEK [Suspect]

REACTIONS (1)
  - CANDIDIASIS [None]
